FAERS Safety Report 6657216-3 (Version None)
Quarter: 2010Q1

REPORT INFORMATION
  Report Type: 
  Country: None (occurrence: None)
  Receive Date: 20100330
  Receipt Date: 20100322
  Transmission Date: 20100710
  Serious: Yes (Hospitalization)
  Sender: FDA-Public Use
  Company Number: US-JNJFOC-20100306597

PATIENT
  Age: 66 Year
  Sex: Male
  Weight: 81.65 kg

DRUGS (3)
  1. SIMPONI [Suspect]
     Indication: RHEUMATOID ARTHRITIS
     Route: 058
  2. PREDNISONE TAB [Concomitant]
     Indication: RHEUMATOID ARTHRITIS
  3. OXYCODONE [Concomitant]
     Indication: PAIN

REACTIONS (2)
  - RHEUMATOID ARTHRITIS [None]
  - SPINAL FUSION SURGERY [None]
